FAERS Safety Report 25055819 (Version 2)
Quarter: 2025Q3

REPORT INFORMATION
  Report Type: Spontaneous
  Country: US (occurrence: US)
  Receive Date: 20250309
  Receipt Date: 20250930
  Transmission Date: 20251020
  Serious: No
  Sender: SANOFI AVENTIS
  Company Number: US-SA-2025SA066907

PATIENT
  Age: 56 Year
  Sex: Female

DRUGS (22)
  1. DUPIXENT [Suspect]
     Active Substance: DUPILUMAB
     Indication: Asthma
     Dosage: 300 MG, QOW
     Route: 058
     Dates: start: 20240716
  2. ACTEMRA [Concomitant]
     Active Substance: TOCILIZUMAB
  3. ALDACTONE [Concomitant]
     Active Substance: SPIRONOLACTONE
  4. ALREX [Concomitant]
     Active Substance: LOTEPREDNOL ETABONATE
  5. BUMETANIDE [Concomitant]
     Active Substance: BUMETANIDE
  6. BUMEX [Concomitant]
     Active Substance: BUMETANIDE
  7. CELLCEPT [Concomitant]
     Active Substance: MYCOPHENOLATE MOFETIL
  8. ESCITALOPRAM [Concomitant]
     Active Substance: ESCITALOPRAM OXALATE
  9. FLUCONAZOLE [Concomitant]
     Active Substance: FLUCONAZOLE
  10. FOLIC ACID [Concomitant]
     Active Substance: FOLIC ACID
  11. HYDROXYCHLOROQUINE [Concomitant]
     Active Substance: HYDROXYCHLOROQUINE
  12. LANSOPRAZOLE [Concomitant]
     Active Substance: LANSOPRAZOLE
  13. LEXAPRO [Concomitant]
     Active Substance: ESCITALOPRAM OXALATE
  14. MAGNESIUM [Concomitant]
     Active Substance: MAGNESIUM
  15. METHOTREXATE [Concomitant]
     Active Substance: METHOTREXATE
  16. POTASSIUM CHLORIDE [Concomitant]
     Active Substance: POTASSIUM CHLORIDE
  17. PREMARIN [Concomitant]
     Active Substance: ESTROGENS, CONJUGATED
  18. PREVACID [Concomitant]
     Active Substance: LANSOPRAZOLE
  19. ROSUVASTATIN [Concomitant]
     Active Substance: ROSUVASTATIN
  20. SPIRONOLACTONE [Concomitant]
     Active Substance: SPIRONOLACTONE
  21. XARELTO [Concomitant]
     Active Substance: RIVAROXABAN
  22. ZOLPIDEM [Concomitant]
     Active Substance: ZOLPIDEM TARTRATE

REACTIONS (2)
  - Pain [Unknown]
  - Drug ineffective [Unknown]
